FAERS Safety Report 8202291-8 (Version None)
Quarter: 2012Q1

REPORT INFORMATION
  Report Type: 
  Country: None (occurrence: None)
  Receive Date: 20120312
  Receipt Date: 20120305
  Transmission Date: 20120608
  Serious: Yes (Hospitalization, Other)
  Sender: FDA-Public Use
  Company Number: US-AMGEN-USASP2011066548

PATIENT
  Age: 37 Year
  Sex: Female
  Weight: 48 kg

DRUGS (19)
  1. XGEVA [Suspect]
     Indication: BREAST CANCER
     Dosage: 120 MUG, Q4WK
     Route: 058
     Dates: start: 20111213, end: 20111213
  2. DECADRON [Concomitant]
     Dosage: UNK
     Dates: start: 20120220
  3. ATIVAN [Concomitant]
     Dosage: UNK
     Dates: start: 20120213
  4. SENNA [Concomitant]
  5. OXYCONTIN [Concomitant]
     Dosage: UNK
     Dates: start: 20111230
  6. MARINOL [Concomitant]
     Dosage: UNK
     Dates: start: 20111209
  7. AMBIEN [Concomitant]
  8. SENNA LAX [Concomitant]
     Dosage: UNK
     Dates: start: 20111114
  9. DIFLUCAN DUO [Concomitant]
     Dosage: UNK
     Dates: start: 20120220
  10. LUNESTA [Concomitant]
     Dosage: UNK
     Dates: start: 20120209
  11. COMPAZINE [Concomitant]
     Dosage: UNK
     Dates: start: 20120209
  12. CALCIUM [Concomitant]
     Dosage: UNK
     Dates: start: 20111003
  13. XGEVA [Suspect]
     Indication: METASTASES TO BONE
     Dosage: 120 MUG, Q4WK
     Route: 058
     Dates: start: 20111114, end: 20111114
  14. MIRALAX [Concomitant]
     Dosage: UNK
     Dates: start: 20111114
  15. CITALOPRAM [Concomitant]
  16. FASLODEX [Concomitant]
  17. ZOFRAN [Concomitant]
     Dosage: UNK
     Dates: start: 20120209
  18. IBUPROFEN [Concomitant]
     Dosage: UNK
     Dates: start: 20120110
  19. PEPCID [Concomitant]
     Dosage: UNK
     Dates: start: 20120220

REACTIONS (4)
  - COUGH [None]
  - CHEST DISCOMFORT [None]
  - RESPIRATORY DISTRESS [None]
  - DYSPNOEA [None]
